FAERS Safety Report 20245702 (Version 6)
Quarter: 2022Q2

REPORT INFORMATION
  Report Type: Report from Study
  Country: BR (occurrence: BR)
  Receive Date: 20211229
  Receipt Date: 20220404
  Transmission Date: 20220721
  Serious: Yes (Hospitalization)
  Sender: FDA-Public Use
  Company Number: BR-NOVARTISPH-NVSC2021BR296855

PATIENT
  Age: 28 Year
  Sex: Male
  Weight: 62.8 kg

DRUGS (5)
  1. CRIZANLIZUMAB [Suspect]
     Active Substance: CRIZANLIZUMAB
     Indication: Sickle cell disease
     Dosage: 5.0 MG/KG
     Route: 042
     Dates: start: 20201015
  2. FOLIC ACID [Concomitant]
     Active Substance: FOLIC ACID
     Indication: General physical condition
     Dosage: UNK
     Route: 065
     Dates: start: 2018
  3. DIPYRONE [Concomitant]
     Active Substance: DIPYRONE
     Indication: Sickle cell anaemia with crisis
     Dosage: UNK
     Route: 065
     Dates: start: 20210905
  4. NIMESULIDE [Concomitant]
     Active Substance: NIMESULIDE
     Indication: Sickle cell anaemia with crisis
     Dosage: UNK
     Route: 065
     Dates: start: 20210905
  5. HYDROXYUREA [Concomitant]
     Active Substance: HYDROXYUREA
     Indication: Sickle cell disease
     Dosage: UNK
     Route: 065
     Dates: start: 2018

REACTIONS (1)
  - Hyperbilirubinaemia [Recovered/Resolved]

NARRATIVE: CASE EVENT DATE: 20211222
